FAERS Safety Report 24091462 (Version 4)
Quarter: 2024Q3

REPORT INFORMATION
  Report Type: Spontaneous
  Country: US (occurrence: US)
  Receive Date: 20240715
  Receipt Date: 20240918
  Transmission Date: 20241016
  Serious: Yes (Hospitalization, Other)
  Sender: PFIZER
  Company Number: US-PFIZER INC-202400213463

PATIENT
  Age: 61 Year
  Sex: Female
  Weight: 71.21 kg

DRUGS (21)
  1. PRISTIQ EXTENDED-RELEASE [Suspect]
     Active Substance: DESVENLAFAXINE SUCCINATE
     Indication: Major depression
     Dosage: UNK
  2. PRISTIQ EXTENDED-RELEASE [Suspect]
     Active Substance: DESVENLAFAXINE SUCCINATE
     Dosage: 25 MG, 1X/DAY (TREATED FOR APPROXIMATELY 7 DAYS
     Route: 048
     Dates: start: 20230627, end: 202307
  3. PRISTIQ EXTENDED-RELEASE [Suspect]
     Active Substance: DESVENLAFAXINE SUCCINATE
     Dosage: 25MG EXTENDED RELEASE TABLETS; 1 TABLET A DAY
     Route: 048
     Dates: start: 20240627, end: 202407
  4. TOPIRAMATE [Concomitant]
     Active Substance: TOPIRAMATE
     Indication: Affective disorder
     Dosage: 25MG DAILY
     Dates: start: 202406
  5. TOPIRAMATE [Concomitant]
     Active Substance: TOPIRAMATE
     Dosage: 3 DAILY
  6. HYDROCHLOROTHIAZIDE [Concomitant]
     Active Substance: HYDROCHLOROTHIAZIDE
     Indication: Inflammation
     Dosage: 25MG TABLET, ONE TAB IN THE MORNING
  7. HYDROCHLOROTHIAZIDE [Concomitant]
     Active Substance: HYDROCHLOROTHIAZIDE
     Indication: Anticoagulant therapy
  8. ROPINIROLE [Concomitant]
     Active Substance: ROPINIROLE
     Indication: Restless legs syndrome
     Dosage: 0.5MG, TAKE 3 TABS A DAY, 1 IN MORNING, 2 AT BEDTIME
  9. METHYLPHENIDATE HYDROCHLORIDE [Concomitant]
     Active Substance: METHYLPHENIDATE HYDROCHLORIDE
     Indication: Attention deficit hyperactivity disorder
     Dosage: 30MG CP 24; TAKE 2 A DAY, 1 AT 11AM 1 AT 3PM
  10. METHYLPHENIDATE HYDROCHLORIDE [Concomitant]
     Active Substance: METHYLPHENIDATE HYDROCHLORIDE
     Indication: Fatigue
  11. BUPROPION [Concomitant]
     Active Substance: BUPROPION
     Indication: Depression
     Dosage: 150MG ER XL TABLET; 1 AT BEDTIME
  12. CLONAZEPAM [Concomitant]
     Active Substance: CLONAZEPAM
     Indication: Anxiety
     Dosage: 2MG TAB, CUT IN HALF, TAKE 1 HALF WHEN NEEDED, 1 HALF AT BEDTIME
  13. TRAZODONE [Concomitant]
     Active Substance: TRAZODONE HYDROCHLORIDE
     Indication: Antidepressant therapy
     Dosage: 100MG TAB, 3 AT BEDTIME
  14. TRAZODONE [Concomitant]
     Active Substance: TRAZODONE HYDROCHLORIDE
     Indication: Insomnia
  15. AUVELITY [Concomitant]
     Active Substance: BUPROPION HYDROCHLORIDE\DEXTROMETHORPHAN HYDROBROMIDE
     Dosage: UNK
  16. PANTOPRAZOLE [Concomitant]
     Active Substance: PANTOPRAZOLE
     Dosage: UNK
  17. CONCERTA [Concomitant]
     Active Substance: METHYLPHENIDATE HYDROCHLORIDE
     Dosage: UNK
  18. WELLBUTRIN [Concomitant]
     Active Substance: BUPROPION HYDROCHLORIDE
     Dosage: UNK
  19. FUROXIME [CEFUROXIME AXETIL] [Concomitant]
     Dosage: UNK
  20. TRAMADOL HYDROCHLORIDE [Concomitant]
     Active Substance: TRAMADOL HYDROCHLORIDE
     Dosage: UNK
  21. LEVOTHYROXINE [Concomitant]
     Active Substance: LEVOTHYROXINE\LEVOTHYROXINE SODIUM
     Dosage: UNK

REACTIONS (31)
  - Cerebrovascular accident [Unknown]
  - Vision blurred [Unknown]
  - Tremor [Unknown]
  - Tardive dyskinesia [Unknown]
  - Amnesia [Unknown]
  - Brain fog [Not Recovered/Not Resolved]
  - Dysphemia [Unknown]
  - Vomiting [Unknown]
  - Weight decreased [Unknown]
  - Pruritus [Unknown]
  - Helplessness [Unknown]
  - Decreased appetite [Unknown]
  - Disturbance in attention [Unknown]
  - Dizziness [Unknown]
  - Fatigue [Unknown]
  - Paraesthesia [Recovered/Resolved]
  - Hypoaesthesia [Recovered/Resolved]
  - Anxiety [Unknown]
  - Dyspnoea [Recovered/Resolved]
  - Depression [Unknown]
  - Dyspepsia [Recovered/Resolved]
  - Nausea [Unknown]
  - Agitation [Unknown]
  - Cognitive disorder [Unknown]
  - Feeling abnormal [Unknown]
  - Irritability [Unknown]
  - Dysarthria [Unknown]
  - Headache [Unknown]
  - Gastrointestinal disorder [Unknown]
  - Blood potassium decreased [Unknown]
  - Drug hypersensitivity [Unknown]

NARRATIVE: CASE EVENT DATE: 20240701
